FAERS Safety Report 20548071 (Version 1)
Quarter: 2022Q1

REPORT INFORMATION
  Report Type: Spontaneous
  Country: US (occurrence: US)
  Receive Date: 20220303
  Receipt Date: 20220303
  Transmission Date: 20220424
  Serious: No
  Sender: FDA-Public Use
  Company Number: US-Zogenix International Limited, A wholly owned subsidiary of Zogenix, Inc.-2021ZX000776

PATIENT
  Age: 7 Year
  Sex: Female
  Weight: 22.700 kg

DRUGS (13)
  1. FINTEPLA [Suspect]
     Active Substance: FENFLURAMINE
     Indication: Severe myoclonic epilepsy of infancy
     Route: 048
     Dates: start: 20201105
  2. FINTEPLA [Suspect]
     Active Substance: FENFLURAMINE
     Route: 048
     Dates: start: 20211015
  3. FINTEPLA [Suspect]
     Active Substance: FENFLURAMINE
     Route: 048
  4. BETHANECHOL [Concomitant]
     Active Substance: BETHANECHOL
     Indication: Product used for unknown indication
     Route: 065
  5. CLONIDINE [Concomitant]
     Active Substance: CLONIDINE
     Indication: Product used for unknown indication
     Route: 065
  6. FAMOTIDINE [Concomitant]
     Active Substance: FAMOTIDINE
     Indication: Product used for unknown indication
     Route: 065
  7. FLONASE [Concomitant]
     Active Substance: FLUTICASONE PROPIONATE
     Indication: Hypersensitivity
     Route: 065
  8. KEPPRA [Concomitant]
     Active Substance: LEVETIRACETAM
     Indication: Product used for unknown indication
     Route: 065
  9. MELATONIN [Concomitant]
     Active Substance: MELATONIN
     Indication: Product used for unknown indication
     Route: 065
  10. OMEPRAZOLE [Concomitant]
     Active Substance: OMEPRAZOLE
     Indication: Product used for unknown indication
     Route: 065
  11. ONFI [Concomitant]
     Active Substance: CLOBAZAM
     Indication: Product used for unknown indication
     Route: 065
  12. ZYRTEC [Concomitant]
     Active Substance: CETIRIZINE HYDROCHLORIDE
     Indication: Product used for unknown indication
     Route: 065
  13. IQed [Concomitant]
     Indication: Product used for unknown indication
     Route: 065

REACTIONS (10)
  - Mental impairment [Unknown]
  - Obsessive-compulsive disorder [Unknown]
  - Increased appetite [Unknown]
  - Weight increased [Unknown]
  - Seizure [Unknown]
  - Generalised tonic-clonic seizure [Unknown]
  - Petit mal epilepsy [Unknown]
  - Irritability [Unknown]
  - Balance disorder [Unknown]
  - Insomnia [Unknown]

NARRATIVE: CASE EVENT DATE: 20210917
